FAERS Safety Report 15607285 (Version 3)
Quarter: 2018Q4

REPORT INFORMATION
  Report Type: Spontaneous
  Country: FR (occurrence: FR)
  Receive Date: 20181112
  Receipt Date: 20181221
  Transmission Date: 20190205
  Serious: Yes (Hospitalization, Other)
  Sender: FDA-Public Use
  Company Number: FR-ASTRAZENECA-2018SF45647

PATIENT
  Age: 54 Year
  Sex: Female

DRUGS (9)
  1. VALIUM [Concomitant]
     Active Substance: DIAZEPAM
  2. ZYPREXA [Suspect]
     Active Substance: OLANZAPINE
     Indication: SCHIZOPHRENIA
     Dosage: AS REQUIRED
     Route: 048
     Dates: start: 20181109, end: 20181128
  3. LOXAPAC [Suspect]
     Active Substance: LOXAPINE
     Indication: SCHIZOPHRENIA
     Dosage: AS REQUIRED
     Route: 048
     Dates: start: 20180926, end: 20181011
  4. PARACETAMOL [Concomitant]
     Active Substance: ACETAMINOPHEN
  5. PARKINANE [Concomitant]
     Active Substance: TRIHEXYPHENIDYL HYDROCHLORIDE
  6. PREVISCAN [Concomitant]
  7. MOVICOL [Concomitant]
     Active Substance: POLYETHYLENE GLYCOL 3350\POTASSIUM CHLORIDE\SODIUM BICARBONATE\SODIUM CHLORIDE
  8. XEROQUEL [Suspect]
     Active Substance: QUETIAPINE FUMARATE
     Indication: SCHIZOPHRENIA
     Route: 048
     Dates: start: 201707, end: 20181011
  9. IMOVANE [Concomitant]
     Active Substance: ZOPICLONE

REACTIONS (3)
  - Camptocormia [Recovering/Resolving]
  - Neuroleptic malignant syndrome [Recovered/Resolved]
  - Symptom recurrence [Recovering/Resolving]

NARRATIVE: CASE EVENT DATE: 20181001
